FAERS Safety Report 18957830 (Version 1)
Quarter: 2021Q1

REPORT INFORMATION
  Report Type: Spontaneous
  Country: US (occurrence: US)
  Receive Date: 20210301
  Receipt Date: 20210301
  Transmission Date: 20210420
  Serious: Yes (Hospitalization)
  Sender: FDA-Public Use
  Company Number: None

PATIENT
  Age: 76 Year
  Sex: Male
  Weight: 185 kg

DRUGS (1)
  1. DABIGATRAN (DABIGATRAN ETEXILATE 150MG CAP,ORAL) [Suspect]
     Active Substance: DABIGATRAN ETEXILATE
     Indication: ATRIAL FIBRILLATION
     Route: 048
     Dates: start: 20150714, end: 20200128

REACTIONS (5)
  - Gastritis [None]
  - Gastrointestinal haemorrhage [None]
  - Gastric haemorrhage [None]
  - Haemoglobin decreased [None]
  - Faeces discoloured [None]

NARRATIVE: CASE EVENT DATE: 20200122
